FAERS Safety Report 6736290-X (Version None)
Quarter: 2010Q2

REPORT INFORMATION
  Report Type: 
  Country: None (occurrence: None)
  Receive Date: 20100521
  Receipt Date: 20100511
  Transmission Date: 20101027
  Serious: Yes (Other)
  Sender: FDA-Public Use
  Company Number: CZ-JNJFOC-20100507096

PATIENT
  Sex: Female

DRUGS (9)
  1. REMICADE [Suspect]
     Indication: COLITIS ULCERATIVE
     Dosage: 8TH INFUSION
     Route: 042
  2. REMICADE [Suspect]
     Route: 042
  3. REMICADE [Suspect]
     Dosage: 6 INFUSIONS ON UNSPECIFIED DATES
     Route: 042
  4. HYDROCORTISONE [Concomitant]
     Indication: PREMEDICATION
  5. AZATHIOPRINE [Concomitant]
  6. OMEPRAZOLE [Concomitant]
  7. ASACOL [Concomitant]
  8. CIPRALEX [Concomitant]
  9. MEDROL [Concomitant]

REACTIONS (2)
  - CYANOSIS [None]
  - INFUSION RELATED REACTION [None]
